FAERS Safety Report 10265026 (Version 1)
Quarter: 2014Q2

REPORT INFORMATION
  Report Type: Report from Study
  Country: JP (occurrence: None)
  Receive Date: 20140624
  Receipt Date: 20140624
  Transmission Date: 20141212
  Serious: Yes (Hospitalization)
  Sender: FDA-Public Use
  Company Number: B140609021

PATIENT
  Age: 5 Year
  Sex: Female

DRUGS (24)
  1. BUPHENYL [Suspect]
     Indication: AMINO ACID METABOLISM DISORDER
     Route: 048
     Dates: start: 20130401, end: 20130410
  2. ARTGI-U (L-ARGININE, L-ARGININE HYDROCHLORIDE) [Concomitant]
  3. SODIUM BENZOATE [Concomitant]
  4. NEUQUINON [Concomitant]
  5. BIOTIN [Concomitant]
  6. L-CARTIN FF (LEVOCAMITINE) [Concomitant]
  7. URALYT-U (OPOTASSIUIM CITRATE) [Concomitant]
  8. NEUROQUINON (UBIDECARENONE) [Concomitant]
  9. ACETOKEEP (SODIUM CHLOLRIDE POTASSIUM CHLORIDE, MAGNESIUM CHLORIDE, MONOBASIC POTASSIUM PHOSPHATE, SODIUM ACETATE HYDRATE, GLUCOSE) [Concomitant]
  10. GLUACETO (SODIUM CHLORIDE, POTASSIUM CHLORIDE, MAGNESIUM CHLORIDE, CALCIUM GLUCONATE HYDRATE, MONOBASIC POTASSIUMP PHOSPHATE, ANHYDROUS SOIDUM ACETATE, GLUCOSE) [Concomitant]
  11. VITAMEDIN (THIAMINE DISULFIDE PHOSPHATE, PYRIDOXINE HYDROCHLORIDE, CYANOCOBALAMIN) [Concomitant]
  12. ROZAREM (RAMELTEON) [Concomitant]
  13. RISPERDAL [Concomitant]
  14. TEGRETOL (CARBAMAZEPINE) [Concomitant]
  15. CONCERTA (METHYLPHENIDATE HYDROCHLORIDE) [Concomitant]
  16. UNKNOWN (FREEZE-DRIED LIVE ATTENUATED VARICELLA VACCINE) [Concomitant]
  17. UNKNOWN (FREEZE-DRIED LIVE ATTENUATED MEASLES AND RUBELLA COMBINED VACCINE) [Concomitant]
  18. UNKNOWN (INFLUENZA HA VACCINE) [Concomitant]
  19. MONILAC (LACTULOSE) [Concomitant]
  20. AMIYU [Concomitant]
  21. ALINAMIN-F [Concomitant]
  22. CINAL [Concomitant]
  23. JUVELA [Concomitant]
  24. ARGININE [Concomitant]

REACTIONS (7)
  - Upper respiratory tract inflammation [None]
  - Dermatitis contact [None]
  - Pharyngitis [None]
  - Gastroenteritis [None]
  - Acute tonsillitis [None]
  - Constipation [None]
  - Bronchitis [None]
